FAERS Safety Report 14844981 (Version 1)
Quarter: 2018Q2

REPORT INFORMATION
  Report Type: Spontaneous
  Country: LT (occurrence: LT)
  Receive Date: 20180504
  Receipt Date: 20180504
  Transmission Date: 20180711
  Serious: Yes (Hospitalization, Other)
  Sender: FDA-Public Use
  Company Number: LT-REGENERON PHARMACEUTICALS, INC.-2018-21861

PATIENT

DRUGS (4)
  1. EYLEA [Suspect]
     Active Substance: AFLIBERCEPT
     Indication: NEOVASCULAR AGE-RELATED MACULAR DEGENERATION
     Dosage: RECEIVED A TOTAL OF 6 INJECTIONS (4 WITHIN LAST 6 MONTHS PRIOR TO EVENT)
     Dates: start: 20170915
  2. EYLEA [Suspect]
     Active Substance: AFLIBERCEPT
     Dosage: 2 MG, RIGHT EYE, LAST INJECTION PRIOR TO EVENT
     Route: 031
     Dates: start: 20180412, end: 20180412
  3. L-THYROXIN                         /00068002/ [Concomitant]
     Indication: PRODUCT USED FOR UNKNOWN INDICATION
  4. POVIDONE-IODINE. [Concomitant]
     Active Substance: POVIDONE-IODINE
     Indication: INFECTION PROPHYLAXIS

REACTIONS (6)
  - Toxic anterior segment syndrome [Unknown]
  - Endophthalmitis [Recovered/Resolved with Sequelae]
  - Multiple use of single-use product [Unknown]
  - Visual impairment [Unknown]
  - Visual acuity reduced [Unknown]
  - Vision blurred [Unknown]

NARRATIVE: CASE EVENT DATE: 20180413
